FAERS Safety Report 4824119-6 (Version None)
Quarter: 2005Q4

REPORT INFORMATION
  Report Type: 
  Country: None (occurrence: None)
  Receive Date: 20051108
  Receipt Date: 20051025
  Transmission Date: 20060501
  Serious: Yes (Hospitalization)
  Sender: FDA-Public Use
  Company Number: USA0510111775

PATIENT
  Age: 39 Year
  Sex: Female

DRUGS (2)
  1. GEMZAR [Suspect]
     Indication: NON-SMALL CELL LUNG CANCER
     Dosage: 1000 MG/M2
     Dates: start: 20050101
  2. CARBOPLATIN [Concomitant]

REACTIONS (1)
  - PNEUMONIA PRIMARY ATYPICAL [None]
